FAERS Safety Report 9075009 (Version 1)
Quarter: 2013Q1

REPORT INFORMATION
  Report Type: Report from Study
  Country: US (occurrence: US)
  Receive Date: 20130131
  Receipt Date: 20130131
  Transmission Date: 20140127
  Serious: No
  Sender: FDA-Public Use
  Company Number: US-ABBOTT-12P-163-1005939-00

PATIENT
  Sex: Male
  Weight: 59.02 kg

DRUGS (4)
  1. HUMIRA [Suspect]
     Indication: PSORIASIS
     Dosage: Q
     Dates: start: 201111, end: 2012
  2. HUMIRA [Suspect]
     Dates: start: 2012
  3. HUMIRA [Suspect]
  4. TYLENOL [Concomitant]
     Indication: HEADACHE

REACTIONS (2)
  - Psoriasis [Not Recovered/Not Resolved]
  - Psoriasis [Not Recovered/Not Resolved]
